FAERS Safety Report 5161355-6 (Version None)
Quarter: 2006Q4

REPORT INFORMATION
  Report Type: 
  Country: None (occurrence: None)
  Receive Date: 20061121
  Receipt Date: 20061109
  Transmission Date: 20070319
  Serious: Yes (Life-Threatening)
  Sender: FDA-Public Use
  Company Number: 2006139363

PATIENT
  Age: 60 Year
  Sex: Female

DRUGS (4)
  1. GABAPEN (GABAPENTIN) [Suspect]
     Indication: TONIC CONVULSION
     Dosage: 400 MG DAILY, ORAL
     Route: 048
     Dates: start: 20061005, end: 20061106
  2. PHENYTOIN [Concomitant]
  3. PHENOBARBITAL TAB [Concomitant]
  4. ZONISAMIDE [Concomitant]

REACTIONS (2)
  - CONDITION AGGRAVATED [None]
  - EPILEPSY [None]
